FAERS Safety Report 7995882-0 (Version None)
Quarter: 2011Q4

REPORT INFORMATION
  Report Type: 
  Country: None (occurrence: None)
  Receive Date: 20111220
  Receipt Date: 20111207
  Transmission Date: 20120403
  Serious: Yes (Hospitalization)
  Sender: FDA-Public Use
  Company Number: US-ELI_LILLY_AND_COMPANY-US201111001033

PATIENT
  Sex: Female
  Weight: 71 kg

DRUGS (3)
  1. PRILOSEC [Concomitant]
  2. FORTEO [Suspect]
     Dosage: 20 UG, QD
     Route: 058
  3. FORTEO [Suspect]
     Indication: OSTEOPOROSIS
     Dosage: 20 UG, QD
     Route: 058

REACTIONS (4)
  - PROCEDURAL PAIN [None]
  - JOINT DISLOCATION [None]
  - MASS [None]
  - ARTHRALGIA [None]
